FAERS Safety Report 8018405-9 (Version None)
Quarter: 2012Q1

REPORT INFORMATION
  Report Type: 
  Country: None (occurrence: None)
  Receive Date: 20120103
  Receipt Date: 20111228
  Transmission Date: 20120608
  Serious: Yes (Death, Life-Threatening, Hospitalization, Other)
  Sender: FDA-Public Use
  Company Number: JP-BAYER-2011-118452

PATIENT
  Age: 70 Year
  Sex: Male
  Weight: 68 kg

DRUGS (13)
  1. BASEN [Concomitant]
     Indication: DIABETES MELLITUS
     Dosage: DAILY DOSE .2 MG
     Route: 048
     Dates: end: 20111225
  2. MORPHINE [Concomitant]
     Indication: CANCER PAIN
     Dosage: UNK
     Route: 048
     Dates: start: 20110901, end: 20111225
  3. LOXONIN [Concomitant]
     Indication: MUSCULOSKELETAL PAIN
     Dosage: UNK
     Route: 061
     Dates: end: 20111226
  4. RESTREAM OD [Concomitant]
     Indication: BENIGN PROSTATIC HYPERPLASIA
     Dosage: DAILY DOSE .2 MG
     Route: 048
     Dates: end: 20111225
  5. NEXAVAR [Suspect]
     Indication: HEPATIC NEOPLASM MALIGNANT
     Dosage: 400 MG, UNK
     Route: 048
     Dates: start: 20111018, end: 20111117
  6. REBAMIPIDE [Concomitant]
     Indication: GASTRIC ULCER
     Dosage: DAILY DOSE 300 MG
     Route: 048
     Dates: end: 20111226
  7. WIDECALL [Concomitant]
     Indication: PROPHYLAXIS
     Dosage: UNK
     Route: 061
     Dates: start: 20111011, end: 20111217
  8. LOXOPROFEN [Concomitant]
     Indication: CANCER PAIN
     Dosage: DAILY DOSE 180 MG
     Route: 048
     Dates: end: 20111226
  9. LANSOPRAZOLE [Concomitant]
     Indication: GASTRIC ULCER
     Dosage: DAILY DOSE 15 MG
     Route: 048
     Dates: end: 20111226
  10. MS CONTIN [Concomitant]
     Indication: CANCER PAIN
     Dosage: DAILY DOSE 10 MG
     Route: 048
     Dates: end: 20111225
  11. VOLTAREN [Concomitant]
     Indication: CANCER PAIN
     Dosage: UNK
     Route: 048
     Dates: start: 20111001, end: 20111201
  12. UBIRON [Concomitant]
     Indication: HEPATIC FUNCTION ABNORMAL
     Dosage: DAILY DOSE 300 MG
     Route: 048
     Dates: end: 20111226
  13. URINORM [Concomitant]
     Indication: HYPERURICAEMIA
     Dosage: DAILY DOSE 25 MG
     Route: 048
     Dates: end: 20111225

REACTIONS (8)
  - CREPITATIONS [None]
  - DYSPNOEA EXERTIONAL [None]
  - PYREXIA [None]
  - WHITE BLOOD CELL COUNT INCREASED [None]
  - INTERSTITIAL LUNG DISEASE [None]
  - BLOOD UREA INCREASED [None]
  - COUGH [None]
  - HYPOALBUMINAEMIA [None]
